FAERS Safety Report 5035916-9 (Version None)
Quarter: 2006Q2

REPORT INFORMATION
  Report Type: 
  Country: None (occurrence: None)
  Receive Date: 20060526
  Receipt Date: 20060308
  Transmission Date: 20061013
  Serious: No
  Sender: FDA-Public Use
  Company Number: 222873

PATIENT
  Age: 43 Year
  Sex: Female

DRUGS (1)
  1. RAPTIVA [Suspect]
     Indication: PSORIASIS
     Dosage: 0.5 ML, SUBCUTANEOUS
     Route: 058
     Dates: start: 20051115

REACTIONS (1)
  - PSORIASIS [None]
